FAERS Safety Report 9815686 (Version 2)
Quarter: 2015Q1

REPORT INFORMATION
  Report Type: Spontaneous
  Country: DK (occurrence: FR)
  Receive Date: 20140114
  Receipt Date: 20150223
  Transmission Date: 20150721
  Serious: Yes (Hospitalization)
  Sender: FDA-Public Use
  Company Number: FR-FRI-1000052812

PATIENT
  Age: 91 Year
  Sex: Female

DRUGS (15)
  1. CORDARONE [Concomitant]
     Active Substance: AMIODARONE HYDROCHLORIDE
     Route: 048
  2. FURADANTINE [Concomitant]
     Active Substance: NITROFURANTOIN
  3. PLAVIX [Interacting]
     Active Substance: CLOPIDOGREL BISULFATE
     Indication: THROMBOSIS PROPHYLAXIS
     Dosage: 75 MG
     Route: 048
     Dates: end: 20131212
  4. REFRESH CELLUVISC [Concomitant]
     Active Substance: CARBOXYMETHYLCELLULOSE SODIUM
     Dosage: 4 MG/0.4 ML
     Route: 047
  5. EBIXA [Concomitant]
     Active Substance: MEMANTINE HYDROCHLORIDE
  6. TRANSIPEG [Concomitant]
     Active Substance: POLYETHYLENE GLYCOL 3350
  7. ESCITALOPRAM [Suspect]
     Active Substance: ESCITALOPRAM OXALATE
     Indication: MENTAL DISORDER
     Dosage: 10 MG
     Route: 048
     Dates: end: 201312
  8. ARIXTRA [Interacting]
     Active Substance: FONDAPARINUX SODIUM
     Indication: THROMBOSIS PROPHYLAXIS
     Dosage: 5 MG
     Route: 058
     Dates: start: 20131119, end: 20131212
  9. TARDYFERON [Concomitant]
     Active Substance: FERROUS SULFATE\FOLIC ACID
  10. MESTINON [Concomitant]
     Active Substance: PYRIDOSTIGMINE BROMIDE
  11. ALPRAZOLAM. [Concomitant]
     Active Substance: ALPRAZOLAM
  12. DICHLORHYDRATE DE CETIRIZINE [Concomitant]
  13. INEXIUM [Concomitant]
     Active Substance: ESOMEPRAZOLE
  14. AMLOR [Concomitant]
     Active Substance: AMLODIPINE BESYLATE
  15. DAFALGAN [Concomitant]
     Active Substance: ACETAMINOPHEN

REACTIONS (4)
  - Drug interaction [Recovered/Resolved]
  - Anaemia [Recovered/Resolved]
  - Ecchymosis [Recovered/Resolved]
  - Haematoma [Recovered/Resolved]

NARRATIVE: CASE EVENT DATE: 20131211
